FAERS Safety Report 5953397-5 (Version None)
Quarter: 2008Q4

REPORT INFORMATION
  Report Type: 
  Country: None (occurrence: None)
  Receive Date: 20081114
  Receipt Date: 20081112
  Transmission Date: 20090506
  Serious: Yes (Life-Threatening, Hospitalization)
  Sender: FDA-Public Use
  Company Number: US-MERCK-0810USA04941

PATIENT
  Age: 42 Year
  Sex: Male

DRUGS (4)
  1. ISENTRESS [Suspect]
     Indication: ANTIRETROVIRAL THERAPY
     Route: 048
  2. PREZISTA [Concomitant]
     Route: 065
  3. NORVIR [Concomitant]
     Route: 065
  4. TRUVADA [Concomitant]
     Route: 065

REACTIONS (3)
  - DEPRESSION [None]
  - FEELING ABNORMAL [None]
  - SUICIDAL IDEATION [None]
